FAERS Safety Report 20826783 (Version 1)
Quarter: 2022Q2

REPORT INFORMATION
  Report Type: Spontaneous
  Country: DE (occurrence: None)
  Receive Date: 20220513
  Receipt Date: 20220513
  Transmission Date: 20220720
  Serious: Yes (Other)
  Sender: FDA-Public Use
  Company Number: 2022A177206

PATIENT

DRUGS (13)
  1. DAPAGLIFLOZIN [Suspect]
     Active Substance: DAPAGLIFLOZIN
     Route: 048
  2. ROSUVASTATIN [Suspect]
     Active Substance: ROSUVASTATIN
     Dosage: AT EVENING
     Route: 048
  3. XIPAMIDE [Concomitant]
     Active Substance: XIPAMIDE
     Dosage: MORNING
  4. TORSEMIDE [Concomitant]
     Active Substance: TORSEMIDE
     Dosage: MORNING
     Route: 048
  5. NAPROXEN [Concomitant]
     Active Substance: NAPROXEN
     Dosage: 500.0MG AS REQUIRED
     Route: 048
  6. ASPIRIN [Concomitant]
     Active Substance: ASPIRIN
     Dosage: FOR 3 MONTHS
     Route: 048
  7. PHENPROCOUMON [Concomitant]
     Active Substance: PHENPROCOUMON
     Route: 048
  8. CLOPIDOGREL [Concomitant]
     Active Substance: CLOPIDOGREL BISULFATE
     Dosage: MORNING
     Route: 065
  9. EPLENERON [Concomitant]
     Dosage: MORNING
     Route: 048
  10. SACUBITRIL [Concomitant]
     Active Substance: SACUBITRIL
     Dosage: MORNING
     Route: 048
  11. PANTOPRAZOLE [Concomitant]
     Active Substance: PANTOPRAZOLE
     Dosage: MORNING
     Route: 048
  12. AMIODARONE [Concomitant]
     Active Substance: AMIODARONE
     Dosage: MORNING
     Route: 048
  13. BISOPROLOL [Concomitant]
     Active Substance: BISOPROLOL
     Dosage: MORNING
     Route: 048

REACTIONS (2)
  - Intertrigo [Unknown]
  - Weight decreased [Unknown]
